FAERS Safety Report 7096121-8 (Version None)
Quarter: 2010Q4

REPORT INFORMATION
  Report Type: 
  Country: None (occurrence: None)
  Receive Date: 20101111
  Receipt Date: 20101026
  Transmission Date: 20110411
  Serious: Yes (Other)
  Sender: FDA-Public Use
  Company Number: US-ROCHE-735242

PATIENT
  Age: 42 Year
  Sex: Female

DRUGS (5)
  1. AVASTIN [Suspect]
     Indication: RECTAL CANCER METASTATIC
     Dosage: FREQUENCY REPORTED AS A CYCLY OF.
     Route: 042
     Dates: start: 20101014, end: 20101014
  2. OXALIPLATIN [Suspect]
     Indication: RECTAL CANCER METASTATIC
     Route: 042
     Dates: start: 20100801
  3. OXALIPLATIN [Suspect]
     Dosage: FREQUENCY REPORTED AS PER CYCLE.
     Route: 042
     Dates: start: 20101014
  4. LEUCOVORIN CALCIUM [Suspect]
     Indication: RECTAL CANCER METASTATIC
     Dosage: FREQUENCY REPORTED AS A CYCLY OF.
     Route: 065
     Dates: start: 20101014, end: 20101014
  5. FLUOROURACIL [Suspect]
     Indication: RECTAL CANCER METASTATIC
     Route: 065
     Dates: start: 20101014, end: 20101014

REACTIONS (1)
  - IDIOPATHIC THROMBOCYTOPENIC PURPURA [None]
